FAERS Safety Report 8002497-7 (Version None)
Quarter: 2011Q4

REPORT INFORMATION
  Report Type: 
  Country: None (occurrence: None)
  Receive Date: 20111222
  Receipt Date: 20111215
  Transmission Date: 20120403
  Serious: Yes (Hospitalization, Other)
  Sender: FDA-Public Use
  Company Number: US-BAYER-2011-029203

PATIENT
  Age: 32 Year
  Sex: Female
  Weight: 104.31 kg

DRUGS (2)
  1. YAZ [Suspect]
     Indication: CONTRACEPTION
     Dosage: UNK
     Dates: start: 20060101
  2. ALBUTEROL [Concomitant]
     Dosage: UNK
     Dates: start: 20010101

REACTIONS (5)
  - INJURY [None]
  - CHOLELITHIASIS [None]
  - FEAR [None]
  - GALLBLADDER INJURY [None]
  - PAIN [None]
